FAERS Safety Report 17864095 (Version 2)
Quarter: 2020Q2

REPORT INFORMATION
  Report Type: Spontaneous
  Country: SA (occurrence: SA)
  Receive Date: 20200605
  Receipt Date: 20200619
  Transmission Date: 20200714
  Serious: Yes (Other)
  Sender: FDA-Public Use
  Company Number: SA-ALEXION PHARMACEUTICALS INC.-A202007987

PATIENT
  Age: 6 Month
  Sex: Male
  Weight: 4 kg

DRUGS (1)
  1. STRENSIQ [Suspect]
     Active Substance: ASFOTASE ALFA
     Indication: HYPOPHOSPHATASIA
     Dosage: 2 MG/KG, TIW
     Route: 058
     Dates: start: 20200429

REACTIONS (2)
  - Blood alkaline phosphatase increased [Unknown]
  - Bacterial tracheitis [Not Recovered/Not Resolved]

NARRATIVE: CASE EVENT DATE: 20200520
